FAERS Safety Report 9930829 (Version 2)
Quarter: 2014Q2

REPORT INFORMATION
  Report Type: Spontaneous
  Country: US (occurrence: US)
  Receive Date: 20140227
  Receipt Date: 20140429
  Transmission Date: 20141212
  Serious: No
  Sender: FDA-Public Use
  Company Number: US-GILEAD-2014-0095660

PATIENT
  Sex: Male

DRUGS (21)
  1. LETAIRIS [Suspect]
     Indication: PULMONARY HYPERTENSION
     Dosage: 10 MG, QD
     Route: 065
     Dates: start: 20130709
  2. LETAIRIS [Suspect]
     Indication: SLEEP APNOEA SYNDROME
  3. LETAIRIS [Suspect]
     Indication: CHRONIC OBSTRUCTIVE PULMONARY DISEASE
  4. COUMADIN                           /00014802/ [Concomitant]
  5. SINEMET [Concomitant]
  6. LASIX                              /00032601/ [Concomitant]
  7. METOPROLOL [Concomitant]
  8. ATORVASTATIN [Concomitant]
  9. ELOCON [Concomitant]
  10. ASPIRIN [Concomitant]
  11. NASONEX [Concomitant]
  12. KETOCONAZOLE [Concomitant]
  13. POTASSIUM [Concomitant]
  14. PROAIR                             /00139502/ [Concomitant]
  15. ASMANEX [Concomitant]
  16. COLCRYS [Concomitant]
  17. PROTONIX [Concomitant]
  18. REQUIP [Concomitant]
  19. PREDNISONE [Concomitant]
  20. TRAMADOL [Concomitant]
  21. OXYGEN [Suspect]

REACTIONS (3)
  - Dermatitis contact [Not Recovered/Not Resolved]
  - Continuous positive airway pressure [Not Recovered/Not Resolved]
  - Rash pruritic [Not Recovered/Not Resolved]
